FAERS Safety Report 9551666 (Version 1)
Quarter: 2013Q3

REPORT INFORMATION
  Report Type: Spontaneous
  Country: MY (occurrence: MY)
  Receive Date: 20130925
  Receipt Date: 20130925
  Transmission Date: 20140515
  Serious: Yes (Other)
  Sender: FDA-Public Use
  Company Number: MY-BAYER-2013-113370

PATIENT
  Age: 46 Year
  Sex: Female

DRUGS (3)
  1. NEXAVAR FILM-COATED TABLETS 200MG [Suspect]
     Indication: HEPATOCELLULAR CARCINOMA
     Dosage: 200 MG, BID
     Route: 048
     Dates: start: 20130729, end: 20130814
  2. NEXAVAR FILM-COATED TABLETS 200MG [Suspect]
     Indication: HEPATOCELLULAR CARCINOMA
     Dosage: 400 MG, BID
     Route: 048
     Dates: start: 20130815, end: 20130827
  3. NEXAVAR FILM-COATED TABLETS 200MG [Suspect]
     Indication: HEPATOCELLULAR CARCINOMA
     Dosage: 200 MG, BID
     Route: 048
     Dates: start: 20130901

REACTIONS (2)
  - Alpha 1 foetoprotein increased [Unknown]
  - Palmar-plantar erythrodysaesthesia syndrome [None]
